FAERS Safety Report 12209197 (Version 1)
Quarter: 2016Q1

REPORT INFORMATION
  Report Type: Spontaneous
  Country: RU (occurrence: RU)
  Receive Date: 20160324
  Receipt Date: 20160324
  Transmission Date: 20160526
  Serious: Yes (Life-Threatening)
  Sender: FDA-Public Use
  Company Number: RU-BAXALTA-2016BLT001770

PATIENT
  Sex: Male

DRUGS (3)
  1. FEIBA [Suspect]
     Active Substance: ANTI-INHIBITOR COAGULANT COMPLEX
     Indication: TONGUE HAEMORRHAGE
     Dosage: UNK, FIRST DOSE
     Route: 065
  2. FEIBA [Suspect]
     Active Substance: ANTI-INHIBITOR COAGULANT COMPLEX
     Dosage: UNK, THIRD DOSE
     Route: 065
  3. FEIBA [Suspect]
     Active Substance: ANTI-INHIBITOR COAGULANT COMPLEX
     Indication: FACTOR VIII DEFICIENCY
     Dosage: UNK, SECOND DOSE
     Route: 065

REACTIONS (2)
  - Laryngospasm [Recovered/Resolved]
  - Cyanosis [Recovered/Resolved]
